FAERS Safety Report 5103622-8 (Version None)
Quarter: 2006Q3

REPORT INFORMATION
  Report Type: 
  Country: None (occurrence: None)
  Receive Date: 20060911
  Receipt Date: 20060911
  Transmission Date: 20061208
  Serious: No
  Sender: FDA-Public Use
  Company Number: None

PATIENT
  Sex: Male
  Weight: 50.7121 kg

DRUGS (5)
  1. MIRTAZAPINE [Suspect]
     Indication: DECREASED APPETITE
     Dosage: 7.5MG   ONCE AT BEDTIME   PO
     Route: 048
     Dates: start: 20041104, end: 20050504
  2. FINASTERIDE [Concomitant]
  3. HYDROCODONE BITARTRATE + ACETAMINOPHEN [Concomitant]
  4. SILDENAFIL CITRATE [Concomitant]
  5. TERAZOSIN HCL [Concomitant]

REACTIONS (3)
  - AGITATION [None]
  - ANXIETY [None]
  - HALLUCINATION [None]
